FAERS Safety Report 4718131-5 (Version None)
Quarter: 2005Q3

REPORT INFORMATION
  Report Type: 
  Country: None (occurrence: None)
  Receive Date: 20050718
  Receipt Date: 20050718
  Transmission Date: 20060218
  Serious: No
  Sender: FDA-Public Use
  Company Number: None

PATIENT
  Age: 58 Year
  Sex: Male
  Weight: 78.0187 kg

DRUGS (11)
  1. FENTANYL [Suspect]
     Indication: PAIN
     Dosage: 1 1  ORAL
     Route: 048
  2. FENTANYL [Suspect]
     Indication: RIB FRACTURE
     Dosage: 1 1  ORAL
     Route: 048
  3. FELODIPINE [Concomitant]
  4. SIMVASTATIN [Concomitant]
  5. TERAZONE [Concomitant]
  6. MUTIVITAMIN [Concomitant]
  7. RANITIDINE [Concomitant]
  8. GLYBURIDE [Concomitant]
  9. GEMFIBROZIL [Concomitant]
  10. TRAZODONE HCL [Concomitant]
  11. ROSIGLITAZONE [Concomitant]

REACTIONS (4)
  - ABDOMINAL PAIN UPPER [None]
  - DYSPNOEA [None]
  - MALAISE [None]
  - VOMITING [None]
